FAERS Safety Report 6595836-5 (Version None)
Quarter: 2010Q1

REPORT INFORMATION
  Report Type: 
  Country: None (occurrence: None)
  Receive Date: 20100216
  Receipt Date: 20100128
  Transmission Date: 20100710
  Serious: Yes (Congenital Anomaly, Other)
  Sender: FDA-Public Use
  Company Number: AUR-APL-2010-00379

PATIENT
  Sex: Female
  Weight: 3.13 kg

DRUGS (5)
  1. ZIDOVUDINE [Suspect]
     Indication: HIV INFECTION
     Dosage: 1708MG/KG HR, TRANSPLACENTAL
     Route: 064
     Dates: start: 20100109, end: 20100109
  2. NELFINAVIR MESYLATE [Suspect]
     Indication: HIV INFECTION
     Dosage: 2500MG, QD,TRANSPLACENTAL
     Route: 064
     Dates: start: 20090924
  3. SAQUINAVIR [Suspect]
     Indication: HIV INFECTION
     Dosage: 2000MG-TRANSPLACENTAL
     Dates: end: 20090924
  4. RITONAVIR [Suspect]
     Indication: HIV INFECTION
     Dosage: 200MG-TRANSPLACENTAL
     Route: 064
     Dates: end: 20090924
  5. LAMIVUDINE + ZIDOVUDINE [Suspect]
     Indication: HIV INFECTION
     Dosage: 2DF-TRANSPLACENTAL
     Route: 064

REACTIONS (2)
  - CONGENITAL NAIL DISORDER [None]
  - MATERNAL DRUGS AFFECTING FOETUS [None]
